FAERS Safety Report 5385603-2 (Version None)
Quarter: 2007Q3

REPORT INFORMATION
  Report Type: 
  Country: None (occurrence: None)
  Receive Date: 20070712
  Receipt Date: 20070709
  Transmission Date: 20080115
  Serious: Yes (Other)
  Sender: FDA-Public Use
  Company Number: HQWYE709103AUG04

PATIENT
  Sex: Female
  Weight: 81.72 kg

DRUGS (1)
  1. PREMPHASE 14/14 [Suspect]

REACTIONS (1)
  - BREAST CANCER RECURRENT [None]
